FAERS Safety Report 8581038 (Version 2)
Quarter: 2013Q3

REPORT INFORMATION
  Report Type: Spontaneous
  Country: US (occurrence: US)
  Receive Date: 20120525
  Receipt Date: 20130904
  Transmission Date: 20140515
  Serious: Yes (Hospitalization)
  Sender: FDA-Public Use
  Company Number: US-GLAXOSMITHKLINE-A0978223A

PATIENT
  Age: 51 Year
  Sex: Male

DRUGS (3)
  1. AVANDIA [Suspect]
     Indication: TYPE 2 DIABETES MELLITUS
     Dosage: 20MG PER DAY
     Route: 048
     Dates: start: 1998, end: 2001
  2. INSULIN [Concomitant]
     Dates: start: 1995
  3. UNKNOWN MEDICATION [Concomitant]

REACTIONS (11)
  - Cardiac failure congestive [Unknown]
  - Coronary artery occlusion [Unknown]
  - Extrasystoles [Unknown]
  - Bone disorder [Unknown]
  - Calcium metabolism disorder [Unknown]
  - Dental caries [Unknown]
  - Back disorder [Not Recovered/Not Resolved]
  - Myocardial infarction [Unknown]
  - Back pain [Not Recovered/Not Resolved]
  - Cardiac disorder [Not Recovered/Not Resolved]
  - Intervertebral disc degeneration [Not Recovered/Not Resolved]
